FAERS Safety Report 9023697 (Version 1)
Quarter: 2013Q1

REPORT INFORMATION
  Report Type: Report from Study
  Country: JP (occurrence: JP)
  Receive Date: 20130121
  Receipt Date: 20130121
  Transmission Date: 20140127
  Serious: No
  Sender: FDA-Public Use
  Company Number: JP-ASTELLAS-2013JP000317

PATIENT
  Sex: Male

DRUGS (12)
  1. TACROLIMUS OINTMENT [Suspect]
     Indication: DERMATITIS ATOPIC
     Dosage: 0.03 %, UNK
     Route: 061
     Dates: start: 20051206
  2. HIRUDOID                           /00723701/ [Concomitant]
     Indication: DERMATITIS ATOPIC
     Dosage: 4 G, UNKNOWN/D
     Route: 061
  3. HIRUDOID                           /00723701/ [Concomitant]
     Dosage: 1.7 G, UNKNOWN/D
     Route: 061
  4. HIRUDOID                           /00723701/ [Concomitant]
     Dosage: 2.3 G, UNKNOWN/D
     Route: 061
  5. HIRUDOID                           /00723701/ [Concomitant]
     Dosage: 1.5 G, UNKNOWN/D
     Route: 061
  6. ZADITEN [Concomitant]
     Indication: DERMATITIS ATOPIC
     Dosage: 2.1 ML, UNKNOWN/D
     Route: 048
     Dates: end: 20060110
  7. POLARAMINE [Concomitant]
     Indication: DERMATITIS ATOPIC
     Dosage: 1.6 ML, UNKNOWN/D
     Route: 048
  8. POLARAMINE [Concomitant]
     Dosage: 0.84 MG, UNKNOWN/D
     Route: 048
     Dates: start: 20070806, end: 20070813
  9. HIRUDOID                           /00723701/ [Concomitant]
     Indication: DERMATITIS ATOPIC
     Dosage: 1 G, UNKNOWN/D
     Route: 061
  10. NEO-MEDROL                         /00259601/ [Concomitant]
     Indication: DERMATITIS ATOPIC
     Dosage: 0.1 G, UNKNOWN/D
     Route: 061
     Dates: start: 20080105, end: 20080212
  11. LOCOID [Concomitant]
     Indication: DERMATITIS ATOPIC
     Dosage: 0.2 G, UNKNOWN/D
     Route: 061
     Dates: start: 20080724, end: 20080904
  12. KINDAVATE [Concomitant]
     Indication: DERMATITIS ATOPIC
     Dosage: 0.1 G, UNKNOWN/D
     Route: 061
     Dates: start: 20080904, end: 20081122

REACTIONS (1)
  - No adverse event [Unknown]
